FAERS Safety Report 17509835 (Version 1)
Quarter: 2020Q1

REPORT INFORMATION
  Report Type: Spontaneous
  Country: US (occurrence: US)
  Receive Date: 20200226
  Receipt Date: 20200226
  Transmission Date: 20200409
  Serious: No
  Sender: FDA-Public Use
  Company Number: None

PATIENT
  Age: 29 Year
  Sex: Male

DRUGS (1)
  1. TALTZ [Suspect]
     Active Substance: IXEKIZUMAB
     Route: 058
     Dates: start: 201904

REACTIONS (4)
  - Psoriasis [None]
  - Condition aggravated [None]
  - Insurance issue [None]
  - Product dose omission [None]

NARRATIVE: CASE EVENT DATE: 20200226
